FAERS Safety Report 23016060 (Version 3)
Quarter: 2024Q2

REPORT INFORMATION
  Report Type: Report from Study
  Country: US (occurrence: US)
  Receive Date: 20231002
  Receipt Date: 20240402
  Transmission Date: 20240716
  Serious: Yes (Hospitalization, Other)
  Sender: FDA-Public Use
  Company Number: US-ARGENX-2022-ARGX-US002287

PATIENT

DRUGS (1)
  1. VYVGART [Suspect]
     Active Substance: EFGARTIGIMOD ALFA-FCAB
     Indication: Myasthenia gravis
     Dosage: UNK
     Route: 042

REACTIONS (14)
  - Symptom recurrence [Unknown]
  - Metastatic squamous cell carcinoma [Unknown]
  - Post procedural haemorrhage [Unknown]
  - Arrhythmia [Unknown]
  - Skin cancer [Unknown]
  - Dysarthria [Unknown]
  - Inappropriate schedule of product administration [Unknown]
  - COVID-19 [Unknown]
  - Swelling face [Unknown]
  - Hypoaesthesia [Unknown]
  - Fatigue [Unknown]
  - Herpes virus infection [Unknown]
  - Therapy non-responder [Unknown]
  - Therapeutic response shortened [Unknown]

NARRATIVE: CASE EVENT DATE: 20221214
